FAERS Safety Report 4483561-6 (Version None)
Quarter: 2004Q4

REPORT INFORMATION
  Report Type: 
  Country: None (occurrence: None)
  Receive Date: 20041021
  Receipt Date: 20041021
  Transmission Date: 20050328
  Serious: No
  Sender: FDA-Public Use
  Company Number: None

PATIENT
  Sex: Female
  Weight: 74.3899 kg

DRUGS (1)
  1. LEVOTHYROXINE SODIUM [Suspect]
     Dosage: 0.1 MG ONCE QD

REACTIONS (3)
  - DYSPHAGIA [None]
  - DYSPNOEA [None]
  - OROPHARYNGEAL SWELLING [None]
